FAERS Safety Report 13152116 (Version 1)
Quarter: 2017Q1

REPORT INFORMATION
  Report Type: Spontaneous
  Country: IN (occurrence: IN)
  Receive Date: 20170125
  Receipt Date: 20170125
  Transmission Date: 20170428
  Serious: Yes (Other)
  Sender: FDA-Public Use
  Company Number: IN-PFIZER INC-2017028804

PATIENT
  Age: 56 Year
  Sex: Female

DRUGS (1)
  1. AROMASIN [Suspect]
     Active Substance: EXEMESTANE
     Indication: BREAST CANCER
     Dosage: 25 MG, 1X/DAY
     Route: 048
     Dates: start: 201602

REACTIONS (10)
  - Thrombosis [Unknown]
  - Cough [Unknown]
  - Muscular weakness [Unknown]
  - Dizziness [Unknown]
  - Hypoacusis [Unknown]
  - Excessive cerumen production [Unknown]
  - Hot flush [Unknown]
  - Nasopharyngitis [Unknown]
  - Breast pain [Unknown]
  - Malaise [Unknown]
